FAERS Safety Report 8300475-1 (Version None)
Quarter: 2012Q2

REPORT INFORMATION
  Report Type: 
  Country: None (occurrence: None)
  Receive Date: 20120417
  Receipt Date: 20120403
  Transmission Date: 20120825
  Serious: Yes (Death, Hospitalization, Other)
  Sender: FDA-Public Use
  Company Number: 2012PV000020

PATIENT
  Age: 65 Year
  Sex: Male

DRUGS (33)
  1. THIOTEPA [Suspect]
     Indication: DIFFUSE LARGE B-CELL LYMPHOMA
  2. THIOTEPA [Suspect]
     Indication: MYELOID LEUKAEMIA
  3. THIOTEPA [Suspect]
     Indication: MYELODYSPLASTIC SYNDROME
  4. RITUXIMAB [Suspect]
     Indication: DIFFUSE LARGE B-CELL LYMPHOMA
  5. RITUXIMAB [Suspect]
     Indication: MYELOID LEUKAEMIA
  6. RITUXIMAB [Suspect]
     Indication: MYELODYSPLASTIC SYNDROME
  7. IDARUBICIN HCL [Suspect]
     Indication: DIFFUSE LARGE B-CELL LYMPHOMA
  8. IDARUBICIN HCL [Suspect]
     Indication: MYELODYSPLASTIC SYNDROME
  9. IDARUBICIN HCL [Suspect]
     Indication: MYELOID LEUKAEMIA
  10. FLUDARABINE PHOSPHATE [Suspect]
     Indication: DIFFUSE LARGE B-CELL LYMPHOMA
  11. FLUDARABINE PHOSPHATE [Suspect]
     Indication: MYELODYSPLASTIC SYNDROME
  12. FLUDARABINE PHOSPHATE [Suspect]
     Indication: MYELOID LEUKAEMIA
  13. ETOPOSIDE [Suspect]
     Indication: DIFFUSE LARGE B-CELL LYMPHOMA
  14. ETOPOSIDE [Suspect]
     Indication: MYELODYSPLASTIC SYNDROME
  15. ETOPOSIDE [Suspect]
     Indication: MYELOID LEUKAEMIA
  16. VALACICLOVIR [Suspect]
     Indication: MYELOID LEUKAEMIA
  17. VALACICLOVIR [Suspect]
     Indication: CYTOMEGALOVIRUS INFECTION
  18. VALACICLOVIR [Suspect]
     Indication: MYELODYSPLASTIC SYNDROME
  19. DEPOCYT [Suspect]
     Indication: DIFFUSE LARGE B-CELL LYMPHOMA
  20. DEPOCYT [Suspect]
     Indication: MYELODYSPLASTIC SYNDROME
  21. DEPOCYT [Suspect]
     Indication: MYELOID LEUKAEMIA
  22. MITOXANTRONE [Suspect]
     Indication: MYELODYSPLASTIC SYNDROME
  23. MITOXANTRONE [Suspect]
     Indication: MYELOID LEUKAEMIA
  24. MITOXANTRONE [Suspect]
     Indication: DIFFUSE LARGE B-CELL LYMPHOMA
  25. ANTI-THYMOCYTE GLOBULIN EQUINE NOS [Suspect]
     Indication: DIFFUSE LARGE B-CELL LYMPHOMA
  26. ANTI-THYMOCYTE GLOBULIN EQUINE NOS [Suspect]
     Indication: MYELODYSPLASTIC SYNDROME
  27. ANTI-THYMOCYTE GLOBULIN EQUINE NOS [Suspect]
     Indication: MYELOID LEUKAEMIA
  28. FOSCARNET [Suspect]
     Indication: MYELODYSPLASTIC SYNDROME
  29. FOSCARNET [Suspect]
     Indication: CYTOMEGALOVIRUS INFECTION
  30. FOSCARNET [Suspect]
     Indication: MYELOID LEUKAEMIA
  31. ACYCLOVIR [Suspect]
     Indication: MYELOID LEUKAEMIA
  32. ACYCLOVIR [Suspect]
     Indication: CYTOMEGALOVIRUS INFECTION
  33. ACYCLOVIR [Suspect]
     Indication: MYELODYSPLASTIC SYNDROME

REACTIONS (5)
  - CENTRAL NERVOUS SYSTEM LESION [None]
  - GRAFT VERSUS HOST DISEASE [None]
  - PANENCEPHALITIS [None]
  - ENCEPHALITIS CYTOMEGALOVIRUS [None]
  - CNS VENTRICULITIS [None]
